FAERS Safety Report 8964586 (Version 1)
Quarter: 2012Q4

REPORT INFORMATION
  Report Type: 
  Country: US (occurrence: US)
  Receive Date: 20121213
  Receipt Date: 20121213
  Transmission Date: 20130627
  Serious: No
  Sender: FDA-Public Use
  Company Number: US-ASTRAZENECA-2012SE90066

PATIENT
  Age: 49 Year
  Sex: Female

DRUGS (2)
  1. SYMBICORT [Suspect]
     Indication: ASTHMA
     Dosage: 160/4.5 mcg, UNKNOWN
     Route: 055
  2. EMSAM [Interacting]
     Route: 065

REACTIONS (1)
  - Drug interaction [Unknown]
